FAERS Safety Report 5041358-2 (Version None)
Quarter: 2006Q2

REPORT INFORMATION
  Report Type: 
  Country: None (occurrence: None)
  Receive Date: 20060628
  Receipt Date: 20060619
  Transmission Date: 20061013
  Serious: Yes (Life-Threatening, Other)
  Sender: FDA-Public Use
  Company Number: 2006-05-2229

PATIENT
  Age: 54 Year
  Sex: Male
  Weight: 98 kg

DRUGS (1)
  1. NASONEX [Suspect]
     Indication: POSTOPERATIVE CARE
     Dosage: 50 MCG BID NASAL SPRAY
     Route: 055
     Dates: start: 20051218, end: 20060415

REACTIONS (3)
  - ANAPHYLACTIC SHOCK [None]
  - BRONCHOSPASM [None]
  - CARDIOVASCULAR DISORDER [None]
